FAERS Safety Report 9345352 (Version 1)
Quarter: 2013Q2

REPORT INFORMATION
  Report Type: Spontaneous
  Country: US (occurrence: US)
  Receive Date: 20130613
  Receipt Date: 20130613
  Transmission Date: 20140414
  Serious: Yes (Other)
  Sender: FDA-Public Use
  Company Number: US-PFIZER INC-2013177689

PATIENT
  Age: 38 Year
  Sex: Male
  Weight: 88.44 kg

DRUGS (2)
  1. LYRICA [Suspect]
     Indication: NEUROPATHY PERIPHERAL
     Dosage: 200 MG, 3X/DAY
     Dates: start: 2009
  2. LYRICA [Suspect]
     Indication: NERVE INJURY

REACTIONS (3)
  - Upper limb fracture [Unknown]
  - Nerve injury [Unknown]
  - Malaise [Unknown]
